FAERS Safety Report 9054350 (Version 3)
Quarter: 2013Q3

REPORT INFORMATION
  Report Type: Spontaneous
  Country: US (occurrence: US)
  Receive Date: 20130208
  Receipt Date: 20130725
  Transmission Date: 20140515
  Serious: Yes (Hospitalization)
  Sender: FDA-Public Use
  Company Number: US-B.I. PHARMACEUTICALS,INC./RIDGEFIELD-2013-BI-03362BP

PATIENT
  Age: 69 Year
  Sex: Male
  Weight: 132.9 kg

DRUGS (13)
  1. PRADAXA [Suspect]
     Indication: ANTICOAGULANT THERAPY
     Dosage: 300 MG
     Route: 048
     Dates: start: 20101216, end: 20110929
  2. PRADAXA [Suspect]
     Indication: ATRIAL FIBRILLATION
  3. METFORMIN [Concomitant]
     Dosage: 2000 MG
     Route: 048
  4. GLYBURIDE [Concomitant]
     Route: 048
  5. LANTUS SOLOSTAR [Concomitant]
     Dosage: 48 U
     Route: 058
  6. AMLODIPINE [Concomitant]
     Dosage: 10 MG
     Route: 048
  7. ASPIRIN [Concomitant]
     Dosage: 325 MG
     Route: 048
  8. ATORVASTATIN [Concomitant]
     Route: 048
  9. BENAZEPRIL-HYDROCHLOROTHIAZIDE [Concomitant]
     Route: 048
  10. CARVEDILOL [Concomitant]
     Dosage: 50 MG
     Route: 048
  11. CITALOPRAM [Concomitant]
     Dosage: 40 MG
     Route: 048
  12. SOTALOL [Concomitant]
     Dosage: 160 MG
     Route: 048
  13. ZOLPIDEM [Concomitant]
     Route: 048

REACTIONS (3)
  - Haematochezia [Unknown]
  - Gastrointestinal haemorrhage [Recovered/Resolved]
  - Haemorrhagic anaemia [Unknown]
